FAERS Safety Report 14392325 (Version 4)
Quarter: 2018Q2

REPORT INFORMATION
  Report Type: Spontaneous
  Country: AT (occurrence: AT)
  Receive Date: 20180116
  Receipt Date: 20180604
  Transmission Date: 20180711
  Serious: Yes (Life-Threatening, Hospitalization, Other)
  Sender: FDA-Public Use
  Company Number: AT-GLAXOSMITHKLINE-AT2018004710

PATIENT
  Age: 16 Year
  Sex: Female
  Weight: 60 kg

DRUGS (2)
  1. LAMICTAL [Suspect]
     Active Substance: LAMOTRIGINE
     Indication: EPILEPSY
     Dosage: 200 MG, QD, 2X100 MG P.O.
     Route: 048
     Dates: start: 201710, end: 201711
  2. GANCICLOVIR. [Suspect]
     Active Substance: GANCICLOVIR
     Indication: PRODUCT USED FOR UNKNOWN INDICATION
     Dosage: UNK
     Route: 016

REACTIONS (8)
  - Haemorrhage [Recovered/Resolved]
  - Autoantibody positive [Recovered/Resolved]
  - Interstitial lung disease [Recovered/Resolved]
  - Liver function test increased [Recovering/Resolving]
  - Thrombocytopenia [Recovered/Resolved]
  - Sepsis [Recovered/Resolved]
  - Enterocolitis haemorrhagic [Recovered/Resolved]
  - Drug reaction with eosinophilia and systemic symptoms [Recovered/Resolved]

NARRATIVE: CASE EVENT DATE: 201711
